FAERS Safety Report 16408591 (Version 2)
Quarter: 2019Q2

REPORT INFORMATION
  Report Type: Spontaneous
  Country: US (occurrence: US)
  Receive Date: 20190610
  Receipt Date: 20190621
  Transmission Date: 20190711
  Serious: Yes (Other)
  Sender: FDA-Public Use
  Company Number: US-SA-2019SA150623

PATIENT
  Age: 89 Year
  Sex: Male

DRUGS (1)
  1. FLOMAX [Suspect]
     Active Substance: TAMSULOSIN HYDROCHLORIDE
     Indication: URINARY RETENTION
     Dosage: UNK UNK, UNK
     Route: 065

REACTIONS (6)
  - Weight decreased [Unknown]
  - Inappropriate release of product for distribution [Unknown]
  - Gastrooesophageal reflux disease [Unknown]
  - Oropharyngeal cancer stage IV [Recovered/Resolved]
  - Hiatus hernia [Unknown]
  - Wrong technique in product usage process [Unknown]
